FAERS Safety Report 17843308 (Version 1)
Quarter: 2020Q2

REPORT INFORMATION
  Report Type: Spontaneous
  Country: DE (occurrence: DE)
  Receive Date: 20200530
  Receipt Date: 20200530
  Transmission Date: 20200714
  Serious: Yes (Other)
  Sender: FDA-Public Use
  Company Number: DE-ACCORD-035852

PATIENT
  Age: 34 Year
  Sex: Male

DRUGS (12)
  1. OXAZEPAM. [Concomitant]
     Active Substance: OXAZEPAM
     Dosage: ALL DOSAGES RECEIVED ORALLY,DAILY DOSE 20 MG
     Route: 048
     Dates: start: 20150529, end: 20150601
  2. QUETIAPINE. [Interacting]
     Active Substance: QUETIAPINE
     Indication: SUBSTANCE DEPENDENCE
     Dosage: 50 MILLIGRAM DAILY, 50 MG/DAY FOR 3 DAYS
     Route: 048
     Dates: start: 20150529, end: 20150531
  3. OXAZEPAM. [Concomitant]
     Active Substance: OXAZEPAM
     Dosage: DAILY DOSE 5 MG
     Route: 048
     Dates: start: 20150604
  4. OXAZEPAM. [Concomitant]
     Active Substance: OXAZEPAM
     Route: 048
     Dates: start: 20150602, end: 20150603
  5. QUETIAPINE. [Suspect]
     Active Substance: QUETIAPINE
     Indication: SUBSTANCE DEPENDENCE
     Dosage: 100 MG/DAY FOR 5 DAYS
     Route: 048
     Dates: start: 20150601, end: 20150605
  6. MIRTAZAPINE. [Concomitant]
     Active Substance: MIRTAZAPINE
     Dosage: DAILY DOSE 7.5 MG
     Route: 048
     Dates: start: 20150528, end: 20150605
  7. ZUCLOPENTHIXOL BAYER [Interacting]
     Active Substance: ZUCLOPENTHIXOL
     Indication: SUBSTANCE DEPENDENCE
     Dosage: 4X25 MG, 100 MG/DAY FOR 2 DAYS
     Route: 048
     Dates: start: 20150604, end: 20150605
  8. BIPERIDEN [Suspect]
     Active Substance: BIPERIDEN
     Indication: PRODUCT USED FOR UNKNOWN INDICATION
  9. METHADONE [Concomitant]
     Active Substance: METHADONE HYDROCHLORIDE
     Dosage: DAILY DOSE 4 ML
     Route: 048
     Dates: start: 2014
  10. GABAPENTIN. [Concomitant]
     Active Substance: GABAPENTIN
     Dosage: DAILY DOSE 600 MG
     Route: 048
     Dates: start: 2014
  11. VALPROIC ACID. [Concomitant]
     Active Substance: VALPROIC ACID
     Route: 048
     Dates: start: 2014
  12. OXAZEPAM. [Concomitant]
     Active Substance: OXAZEPAM
     Route: 048
     Dates: start: 20150605

REACTIONS (3)
  - Priapism [Recovered/Resolved]
  - Off label use [Unknown]
  - Drug interaction [Unknown]

NARRATIVE: CASE EVENT DATE: 20150605
